FAERS Safety Report 15570807 (Version 2)
Quarter: 2018Q4

REPORT INFORMATION
  Report Type: Spontaneous
  Country: US (occurrence: US)
  Receive Date: 20181031
  Receipt Date: 20181113
  Transmission Date: 20190205
  Serious: No
  Sender: FDA-Public Use
  Company Number: US-TEVA-2018-US-968857

PATIENT
  Sex: Female

DRUGS (1)
  1. CLONAZEPAM ACTAVIS [Suspect]
     Active Substance: CLONAZEPAM
     Indication: ESSENTIAL TREMOR
     Dosage: 2 MILLIGRAM DAILY; INCREASE HER DOSAGE FROM 1MG TO 2 AND A HALF UP TO 3 MGS
     Dates: start: 201810

REACTIONS (4)
  - Drug effect decreased [Unknown]
  - Product substitution issue [Unknown]
  - Manufacturing materials issue [Unknown]
  - Product use in unapproved indication [Unknown]

NARRATIVE: CASE EVENT DATE: 201810
